FAERS Safety Report 4860090-9 (Version None)
Quarter: 2005Q4

REPORT INFORMATION
  Report Type: 
  Country: None (occurrence: None)
  Receive Date: 20051219
  Receipt Date: 20050831
  Transmission Date: 20060501
  Serious: Yes (Hospitalization)
  Sender: FDA-Public Use
  Company Number: US-ROCHE-416118

PATIENT
  Age: 63 Year
  Sex: Female
  Weight: 62.8 kg

DRUGS (8)
  1. CAPECITABINE [Suspect]
     Dosage: TWICE A DAY FOR TWO WEEKS.
     Route: 048
     Dates: start: 20050621, end: 20050830
  2. BEVACIZUMAB [Suspect]
     Route: 042
     Dates: start: 20050621, end: 20050921
  3. OXALIPLATIN [Suspect]
     Route: 042
     Dates: start: 20050621, end: 20050921
  4. COMPAZINE [Concomitant]
     Dosage: WHEN NEEDED.
     Dates: start: 20050720, end: 20050830
  5. LOMOTIL [Concomitant]
     Dosage: WHEN NEEDED.
     Dates: start: 20050720, end: 20050830
  6. MULTIVITAMIN NOS [Concomitant]
  7. LOTREL [Concomitant]
  8. LIPITOR [Concomitant]

REACTIONS (1)
  - REVERSIBLE ISCHAEMIC NEUROLOGICAL DEFICIT [None]
